FAERS Safety Report 18732611 (Version 1)
Quarter: 2021Q1

REPORT INFORMATION
  Report Type: Spontaneous
  Country: US (occurrence: US)
  Receive Date: 20210112
  Receipt Date: 20210112
  Transmission Date: 20210419
  Serious: No
  Sender: FDA-Public Use
  Company Number: US-GALDERMA-US2020051756

PATIENT
  Sex: Female

DRUGS (2)
  1. AKLIEF [Suspect]
     Active Substance: TRIFAROTENE
     Indication: ACNE
     Dosage: 0.005%
     Route: 061
  2. KETOCONOZOLE [Concomitant]
     Active Substance: KETOCONAZOLE

REACTIONS (1)
  - Rash erythematous [Recovered/Resolved]
